FAERS Safety Report 8843173 (Version 5)
Quarter: 2013Q1

REPORT INFORMATION
  Report Type: Report from Study
  Country: JP (occurrence: JP)
  Receive Date: 20121016
  Receipt Date: 20130227
  Transmission Date: 20140127
  Serious: Yes (Disabling)
  Sender: FDA-Public Use
  Company Number: JP-ROCHE-1143970

PATIENT
  Age: 61 Year
  Sex: Male

DRUGS (12)
  1. RANIBIZUMAB [Suspect]
     Indication: POLYPOIDAL CHOROIDAL VASCULOPATHY
     Route: 050
     Dates: start: 200912
  2. RANIBIZUMAB [Suspect]
     Route: 050
     Dates: start: 20110112
  3. RANIBIZUMAB [Suspect]
     Route: 050
     Dates: start: 20110215
  4. RANIBIZUMAB [Suspect]
     Route: 050
     Dates: start: 20110607
  5. RANIBIZUMAB [Suspect]
     Route: 050
     Dates: start: 20110712
  6. RANIBIZUMAB [Suspect]
     Route: 050
     Dates: start: 20110825
  7. RANIBIZUMAB [Suspect]
     Route: 050
     Dates: start: 20111006
  8. RANIBIZUMAB [Suspect]
     Route: 050
     Dates: start: 20121207
  9. VERTEPORFIN [Suspect]
     Indication: POLYPOIDAL CHOROIDAL VASCULOPATHY
     Route: 042
     Dates: start: 200912, end: 200912
  10. VERTEPORFIN [Suspect]
     Route: 042
     Dates: start: 20110117
  11. VERTEPORFIN [Suspect]
     Route: 042
     Dates: start: 20110715
  12. CRAVIT [Concomitant]
     Route: 065
     Dates: start: 201101, end: 201212

REACTIONS (4)
  - Retinal haemorrhage [Recovering/Resolving]
  - Polypoidal choroidal vasculopathy [Recovering/Resolving]
  - Visual acuity reduced [Not Recovered/Not Resolved]
  - Retinal haemorrhage [Recovering/Resolving]
